FAERS Safety Report 6250027-2 (Version None)
Quarter: 2009Q2

REPORT INFORMATION
  Report Type: 
  Country: None (occurrence: None)
  Receive Date: 20090629
  Receipt Date: 20090618
  Transmission Date: 20091009
  Serious: Yes (Other)
  Sender: FDA-Public Use
  Company Number: PHHY2009FR22159

PATIENT
  Sex: Male
  Weight: 111 kg

DRUGS (3)
  1. COTAREG [Suspect]
     Indication: HYPERTENSION
     Dosage: 80 MG/12.5 MG, QD
     Route: 048
     Dates: start: 20030101
  2. TAHOR [Concomitant]
     Indication: HYPERCHOLESTEROLAEMIA
     Dosage: UNK
     Dates: start: 20030101
  3. AVANDAMET [Concomitant]
     Indication: TYPE 2 DIABETES MELLITUS
     Dosage: UNK
     Dates: start: 20030101

REACTIONS (2)
  - GYNAECOMASTIA [None]
  - SURGERY [None]
